FAERS Safety Report 9165286 (Version 1)
Quarter: 2013Q1

REPORT INFORMATION
  Report Type: Spontaneous
  Country: US (occurrence: None)
  Receive Date: 20130314
  Receipt Date: 20130314
  Transmission Date: 20140127
  Serious: Yes (Death)
  Sender: FDA-Public Use
  Company Number: None

PATIENT
  Age: 47 Year
  Sex: Male
  Weight: 96.93 kg

DRUGS (15)
  1. GEMCITABINE [Suspect]
  2. OXALIPLATIN [Suspect]
  3. METFORMIN [Concomitant]
  4. SIMVASTATIN [Concomitant]
  5. COLCRYS [Concomitant]
  6. ULORIC [Concomitant]
  7. DOCUSATE SODIUM [Concomitant]
  8. ZOFRAN [Concomitant]
  9. PROMETHAZINE [Concomitant]
  10. MINOCYCLINE [Concomitant]
  11. MORPHINE [Concomitant]
  12. MS CONTIN [Concomitant]
  13. CREON (CREON 24) [Concomitant]
  14. FUROSEMIDE (ALSO KNOWN AS LASIX) [Concomitant]
  15. SPIRONOCOLACTONE (AS KNOWN AS ALDACTONE) [Concomitant]

REACTIONS (9)
  - Diarrhoea [None]
  - Dehydration [None]
  - Ascites [None]
  - Blood bilirubin increased [None]
  - Fluid overload [None]
  - Blood sodium decreased [None]
  - Blood creatinine increased [None]
  - Hepatic function abnormal [None]
  - No therapeutic response [None]
